FAERS Safety Report 9357376 (Version 1)
Quarter: 2013Q2

REPORT INFORMATION
  Report Type: Spontaneous
  Country: US (occurrence: None)
  Receive Date: 20130617
  Receipt Date: 20130617
  Transmission Date: 20140414
  Serious: Yes (Hospitalization)
  Sender: FDA-Public Use
  Company Number: 2013-10969

PATIENT
  Age: 58 Year
  Sex: Male
  Weight: 82 kg

DRUGS (2)
  1. NIACIN [Suspect]
     Indication: BLOOD CHOLESTEROL
     Dosage: 1 TABLET DAILY FOR SIX WEEKS (DURING THE SUMMER), ORAL.
     Route: 048
  2. NIACIN [Suspect]
     Route: 048

REACTIONS (6)
  - Myocardial infarction [None]
  - Dizziness [None]
  - Cold sweat [None]
  - Heart rate increased [None]
  - Chest discomfort [None]
  - Fatigue [None]
